FAERS Safety Report 8420987-X (Version None)
Quarter: 2012Q2

REPORT INFORMATION
  Report Type: 
  Country: None (occurrence: None)
  Receive Date: 20120531
  Receipt Date: 20120509
  Transmission Date: 20120825
  Serious: Yes (Hospitalization, Other)
  Sender: FDA-Public Use
  Company Number: DE-021797

PATIENT
  Age: 73 Year
  Sex: Male
  Weight: 60.9 kg

DRUGS (1)
  1. CHLORAMBUCIL(CHLORAMBUCIL) (TABLET) [Suspect]
     Indication: CHRONIC LYMPHOCYTIC LEUKAEMIA
     Dosage: 10 MG/M2 AT DAYS 1-7 EVERY 28 DAYS, ORAL
     Route: 048
     Dates: start: 20091013, end: 20091016

REACTIONS (1)
  - HAEMOPHILUS INFECTION [None]
